FAERS Safety Report 8435900-9 (Version None)
Quarter: 2012Q2

REPORT INFORMATION
  Report Type: 
  Country: None (occurrence: None)
  Receive Date: 20120614
  Receipt Date: 20120605
  Transmission Date: 20120825
  Serious: Yes (Other)
  Sender: FDA-Public Use
  Company Number: DE-ROCHE-1050186

PATIENT
  Age: 72 Year
  Sex: Male
  Weight: 77 kg

DRUGS (11)
  1. ACTEMRA [Suspect]
     Dates: start: 20120125
  2. MARCUMAR [Concomitant]
  3. ACTEMRA [Suspect]
     Dates: start: 20120227
  4. METHOTREXATE [Concomitant]
     Indication: RHEUMATOID ARTHRITIS
     Route: 048
  5. OSTEOPLUS (GERMANY) [Concomitant]
  6. ACTEMRA [Suspect]
     Indication: POLYARTHRITIS
     Route: 042
     Dates: start: 20111130
  7. ACTEMRA [Suspect]
     Indication: RHEUMATOID ARTHRITIS
     Dates: start: 20111221
  8. DIPYRONE TAB [Concomitant]
     Route: 048
  9. ALENDRONATE SODIUM [Concomitant]
  10. PREDNISOLONE [Concomitant]
     Indication: RHEUMATOID ARTHRITIS
     Route: 048
  11. LEUCOVORIN CALCIUM [Concomitant]

REACTIONS (6)
  - RHINITIS [None]
  - VERTIGO [None]
  - CHEST DISCOMFORT [None]
  - HYPERCHOLESTEROLAEMIA [None]
  - ORAL HERPES [None]
  - CONJUNCTIVITIS [None]
